FAERS Safety Report 22046066 (Version 1)
Quarter: 2023Q1

REPORT INFORMATION
  Report Type: Report from Study
  Country: CA (occurrence: CA)
  Receive Date: 20230228
  Receipt Date: 20230228
  Transmission Date: 20230418
  Serious: Yes (Other)
  Sender: FDA-Public Use
  Company Number: CA-TAKEDA-2019TUS046576

PATIENT
  Age: 66 Year
  Sex: Male

DRUGS (3)
  1. IXAZOMIB [Suspect]
     Active Substance: IXAZOMIB
     Indication: Plasma cell myeloma
     Dosage: 2.3 MILLIGRAM
     Route: 048
     Dates: start: 20190510
  2. IXAZOMIB [Suspect]
     Active Substance: IXAZOMIB
     Dosage: 3 MILLIGRAM
     Route: 048
     Dates: start: 20190513
  3. ZOMETA [Concomitant]
     Active Substance: ZOLEDRONIC ACID
     Dosage: UNK
     Route: 065

REACTIONS (10)
  - Plasma cell myeloma [Unknown]
  - Feeling hot [Unknown]
  - Chills [Unknown]
  - Musculoskeletal discomfort [Unknown]
  - Pollakiuria [Unknown]
  - Rhinorrhoea [Unknown]
  - Fatigue [Unknown]
  - Rash papular [Unknown]
  - Full blood count increased [Unknown]
  - Drug ineffective [Unknown]
